FAERS Safety Report 5810062-2 (Version None)
Quarter: 2008Q3

REPORT INFORMATION
  Report Type: 
  Country: None (occurrence: None)
  Receive Date: 20080715
  Receipt Date: 20080709
  Transmission Date: 20090109
  Serious: Yes (Other)
  Sender: FDA-Public Use
  Company Number: A0737774A

PATIENT
  Age: 44 Year
  Sex: Female
  Weight: 79.5 kg

DRUGS (11)
  1. RYTHMOL [Suspect]
     Route: 048
     Dates: start: 20080301
  2. LYRICA [Suspect]
     Indication: FIBROMYALGIA
     Dosage: 100MG TWICE PER DAY
     Dates: start: 20050101
  3. DETROL [Concomitant]
  4. SINGULAIR [Concomitant]
  5. VASOTEC [Concomitant]
  6. TOPROL-XL [Concomitant]
  7. GLIPIZIDE [Concomitant]
  8. PREVACID [Concomitant]
  9. FENTANYL CITRATE [Concomitant]
  10. MOTRIN [Concomitant]
  11. UNSPECIFIED MEDICATION [Concomitant]

REACTIONS (6)
  - DIPLOPIA [None]
  - HYPOAESTHESIA [None]
  - PARAESTHESIA [None]
  - SOMNOLENCE [None]
  - VISION BLURRED [None]
  - WEIGHT INCREASED [None]
